FAERS Safety Report 5746096-6 (Version None)
Quarter: 2008Q2

REPORT INFORMATION
  Report Type: 
  Country: None (occurrence: None)
  Receive Date: 20080522
  Receipt Date: 20080208
  Transmission Date: 20081010
  Serious: No
  Sender: FDA-Public Use
  Company Number: A0709422A

PATIENT
  Age: 76 Year
  Sex: Male

DRUGS (13)
  1. BACTROBAN [Suspect]
     Indication: SKIN INFECTION
     Dosage: 22G THREE TIMES PER DAY
     Route: 061
     Dates: start: 20080206, end: 20080207
  2. COUMADIN [Suspect]
     Indication: ATRIAL FIBRILLATION
     Route: 065
  3. DIGOXIN [Concomitant]
  4. INSPRA [Concomitant]
  5. DYAZIDE [Concomitant]
  6. K-DUR [Concomitant]
  7. CALCIUM MAGNESIUM [Concomitant]
  8. AVAPRO [Concomitant]
  9. CARAFATE [Concomitant]
  10. MULTI-VITAMIN [Concomitant]
  11. VITAMIN D [Concomitant]
  12. ERYTHROMYCIN [Concomitant]
  13. BION TEARS [Concomitant]

REACTIONS (3)
  - DRUG INTERACTION [None]
  - EPISTAXIS [None]
  - HAEMOPTYSIS [None]
